FAERS Safety Report 7601582-9 (Version None)
Quarter: 2011Q3

REPORT INFORMATION
  Report Type: 
  Country: None (occurrence: None)
  Receive Date: 20110711
  Receipt Date: 20110628
  Transmission Date: 20111222
  Serious: Yes (Other)
  Sender: FDA-Public Use
  Company Number: PHHY2011US54361

PATIENT
  Sex: Female
  Weight: 65.306 kg

DRUGS (3)
  1. AROMASIN [Concomitant]
  2. AVAPRO [Concomitant]
     Dosage: 300 MG, DAILY
  3. TEKTURNA [Suspect]
     Dosage: 300 MG, DAILY

REACTIONS (3)
  - MALAISE [None]
  - BREAST CANCER [None]
  - ASTHENIA [None]
